FAERS Safety Report 8764008 (Version 2)
Quarter: 2012Q4

REPORT INFORMATION
  Report Type: 
  Country: GB (occurrence: GB)
  Receive Date: 20120831
  Receipt Date: 20120912
  Transmission Date: 20130627
  Serious: Yes (Other)
  Sender: FDA-Public Use
  Company Number: GB-VERTEX PHARMACEUTICAL INC.-2012-019789

PATIENT
  Age: 57 Year
  Sex: Male

DRUGS (1)
  1. VX-950 [Suspect]
     Indication: HEPATITIS C
     Dosage: 750 mg, tid
     Route: 048
     Dates: start: 20120528

REACTIONS (4)
  - Rectal haemorrhage [Recovered/Resolved]
  - Nausea [Unknown]
  - Decreased appetite [Unknown]
  - Malaise [Unknown]
